FAERS Safety Report 14689206 (Version 1)
Quarter: 2018Q1

REPORT INFORMATION
  Report Type: Spontaneous
  Country: NL (occurrence: NL)
  Receive Date: 20180328
  Receipt Date: 20180328
  Transmission Date: 20180509
  Serious: Yes (Hospitalization)
  Sender: FDA-Public Use
  Company Number: NL-ABBVIE-18S-114-2303798-00

PATIENT
  Sex: Male

DRUGS (4)
  1. HALDOL [Interacting]
     Active Substance: HALOPERIDOL
     Indication: MANIA
     Route: 065
     Dates: start: 20100517
  2. DEPAKINE [Suspect]
     Active Substance: VALPROATE SODIUM
     Indication: MOOD SWINGS
     Route: 065
     Dates: start: 20100527
  3. ZYPREXA [Interacting]
     Active Substance: OLANZAPINE
     Indication: MANIA
     Route: 065
     Dates: start: 20100627
  4. LORAZEPAM. [Interacting]
     Active Substance: LORAZEPAM
     Indication: ANXIETY
     Route: 065
     Dates: start: 20100517

REACTIONS (3)
  - Weight increased [Recovering/Resolving]
  - Blood cholesterol increased [Recovering/Resolving]
  - Drug interaction [Unknown]
